FAERS Safety Report 24172250 (Version 3)
Quarter: 2025Q1

REPORT INFORMATION
  Report Type: Spontaneous
  Country: US (occurrence: US)
  Receive Date: 20240805
  Receipt Date: 20250205
  Transmission Date: 20250408
  Serious: Yes (Hospitalization, Other)
  Sender: NOVO NORDISK
  Company Number: US-NOVOPROD-1262680

PATIENT
  Age: 62 Year
  Sex: Male
  Weight: 47.619 kg

DRUGS (2)
  1. NOVOLOG [Suspect]
     Active Substance: INSULIN ASPART
     Route: 058
     Dates: start: 2020
  2. NOVOLOG [Suspect]
     Active Substance: INSULIN ASPART
     Indication: Type 1 diabetes mellitus
     Route: 058
     Dates: start: 2020

REACTIONS (6)
  - Diabetic ketoacidosis [Recovered/Resolved]
  - Blindness unilateral [Not Recovered/Not Resolved]
  - Cataract operation [Unknown]
  - Toe amputation [Unknown]
  - Coordination abnormal [Unknown]
  - Memory impairment [Not Recovered/Not Resolved]

NARRATIVE: CASE EVENT DATE: 20220101
